FAERS Safety Report 8474914-X (Version None)
Quarter: 2012Q2

REPORT INFORMATION
  Report Type: 
  Country: None (occurrence: None)
  Receive Date: 20120628
  Receipt Date: 20120625
  Transmission Date: 20120825
  Serious: Yes (Hospitalization, Other)
  Sender: FDA-Public Use
  Company Number: PHHY2011IN68276

PATIENT
  Sex: Female

DRUGS (2)
  1. IMATINIB MESYLATE [Suspect]
     Indication: CHRONIC MYELOID LEUKAEMIA
     Dosage: 600 MG,
  2. IMATINIB MESYLATE [Suspect]
     Dosage: 800 MG

REACTIONS (9)
  - ORAL MUCOSAL BLISTERING [None]
  - FURUNCLE [None]
  - RETINOPATHY [None]
  - DIABETES MELLITUS [None]
  - OBESITY [None]
  - VISUAL IMPAIRMENT [None]
  - WEIGHT INCREASED [None]
  - EYE DISORDER [None]
  - DRUG INEFFECTIVE [None]
